FAERS Safety Report 7057498-2 (Version None)
Quarter: 2010Q4

REPORT INFORMATION
  Report Type: 
  Country: None (occurrence: None)
  Receive Date: 20101022
  Receipt Date: 20101014
  Transmission Date: 20110411
  Serious: Yes (Other)
  Sender: FDA-Public Use
  Company Number: US-ROCHE-725552

PATIENT
  Sex: Female

DRUGS (3)
  1. HERCEPTIN [Suspect]
     Indication: BREAST CANCER
     Route: 065
  2. ADRIAMYCIN PFS [Suspect]
     Indication: BREAST CANCER
     Route: 065
  3. TAXOL [Suspect]
     Indication: BREAST CANCER
     Route: 065

REACTIONS (1)
  - CEREBROVASCULAR ACCIDENT [None]
